FAERS Safety Report 11821355 (Version 1)
Quarter: 2015Q4

REPORT INFORMATION
  Report Type: Spontaneous
  Country: US (occurrence: US)
  Receive Date: 20151210
  Receipt Date: 20151210
  Transmission Date: 20160305
  Serious: No
  Sender: FDA-Public Use
  Company Number: US-JNJFOC-20150619199

PATIENT
  Sex: Female

DRUGS (4)
  1. IMBRUVICA [Suspect]
     Active Substance: IBRUTINIB
     Indication: CHRONIC LYMPHOCYTIC LEUKAEMIA
     Route: 048
     Dates: start: 201503
  2. VALACYCLOVIR [Concomitant]
     Active Substance: VALACYCLOVIR HYDROCHLORIDE
  3. LEVOFLOXACIN. [Concomitant]
     Active Substance: LEVOFLOXACIN
  4. ALLOPURINOL. [Concomitant]
     Active Substance: ALLOPURINOL

REACTIONS (12)
  - Rash [Unknown]
  - Skin papilloma [Unknown]
  - Herpes virus infection [Unknown]
  - Laceration [Unknown]
  - Injury [Unknown]
  - Lymphadenopathy [Unknown]
  - Impaired healing [Unknown]
  - Blood lactate dehydrogenase increased [Unknown]
  - White blood cell count increased [Recovering/Resolving]
  - Contusion [Unknown]
  - Skin irritation [Unknown]
  - Weight decreased [Unknown]

NARRATIVE: CASE EVENT DATE: 2015
